FAERS Safety Report 8454043-1 (Version None)
Quarter: 2012Q2

REPORT INFORMATION
  Report Type: 
  Country: None (occurrence: None)
  Receive Date: 20120620
  Receipt Date: 20120612
  Transmission Date: 20120825
  Serious: Yes (Other)
  Sender: FDA-Public Use
  Company Number: US-JNJFOC-20120106196

PATIENT
  Sex: Male

DRUGS (4)
  1. METHOTREXATE [Concomitant]
  2. REMICADE [Suspect]
     Indication: PRODUCT USED FOR UNKNOWN INDICATION
     Route: 042
     Dates: start: 20110816
  3. PREDNISONE TAB [Concomitant]
  4. REMICADE [Suspect]
     Route: 042
     Dates: start: 20111102

REACTIONS (1)
  - HEAD AND NECK CANCER [None]
